FAERS Safety Report 10688283 (Version 1)
Quarter: 2014Q4

REPORT INFORMATION
  Report Type: Spontaneous
  Country: US (occurrence: None)
  Receive Date: 20141231
  Receipt Date: 20141231
  Transmission Date: 20150529
  Serious: Yes (Hospitalization)
  Sender: FDA-Public Use
  Company Number: 2014-00114

PATIENT
  Age: 74 Year
  Sex: Male
  Weight: 79.38 kg

DRUGS (1)
  1. ZICAM COLD REMEDY [Suspect]
     Active Substance: ZINC ACETATE\ZINC GLUCONATE
     Indication: INFLUENZA
     Dosage: 1 PACKET ORALLY X 2
     Route: 048
     Dates: start: 20141217

REACTIONS (3)
  - Palpitations [None]
  - Heart rate increased [None]
  - Blood pressure increased [None]

NARRATIVE: CASE EVENT DATE: 20141218
